FAERS Safety Report 22643400 (Version 1)
Quarter: 2023Q2

REPORT INFORMATION
  Report Type: Report from Study
  Country: IL (occurrence: IL)
  Receive Date: 20230627
  Receipt Date: 20230627
  Transmission Date: 20230722
  Serious: Yes (Hospitalization, Other)
  Sender: FDA-Public Use
  Company Number: IL-ABBVIE-5296171

PATIENT
  Age: 87 Year
  Sex: Female
  Weight: 61 kg

DRUGS (26)
  1. VENETOCLAX [Suspect]
     Active Substance: VENETOCLAX
     Indication: Acute myelomonocytic leukaemia
     Dosage: 200 MG DISCONTINUATION REASONS FOR DISCONTINUATION OF VENETOCLAX: PROGRESSION OF DISEASE?DURATION...
     Route: 048
     Dates: start: 20230509, end: 20230605
  2. VENETOCLAX [Suspect]
     Active Substance: VENETOCLAX
     Indication: Acute myelomonocytic leukaemia
     Dosage: 400 MILLIGRAM
     Route: 048
     Dates: start: 20211024, end: 20220607
  3. VENETOCLAX [Suspect]
     Active Substance: VENETOCLAX
     Indication: Acute myelomonocytic leukaemia
     Dosage: 200 MILLIGRAM
     Route: 048
     Dates: start: 20211023, end: 20211023
  4. VENETOCLAX [Suspect]
     Active Substance: VENETOCLAX
     Indication: Acute myelomonocytic leukaemia
     Dosage: 400 MG, DOSE REDUCTION COUNT RECOVERY (ANC, PLATELETS OR HEMOGLOBIN)
     Route: 048
     Dates: start: 20230130, end: 20230508
  5. VENETOCLAX [Suspect]
     Active Substance: VENETOCLAX
     Indication: Acute myelomonocytic leukaemia
     Dosage: 100 MILLIGRAM
     Route: 048
     Dates: start: 20211022, end: 20211022
  6. FOLIC ACID [Concomitant]
     Active Substance: FOLIC ACID
     Indication: Prophylaxis
     Dates: start: 20160528
  7. AMLODIPINE [Concomitant]
     Active Substance: AMLODIPINE BESYLATE
     Indication: Prophylaxis
     Dates: start: 20210827
  8. AZACITIDINE [Suspect]
     Active Substance: AZACITIDINE
     Indication: Acute myelomonocytic leukaemia
     Dosage: CYCLE 4, 125 MG
     Route: 058
     Dates: start: 20220911, end: 20220912
  9. AZACITIDINE [Suspect]
     Active Substance: AZACITIDINE
     Indication: Acute myelomonocytic leukaemia
     Dosage: CYCLE 2, 125 MG
     Route: 058
     Dates: start: 20211130, end: 20211130
  10. AZACITIDINE [Suspect]
     Active Substance: AZACITIDINE
     Indication: Acute myelomonocytic leukaemia
     Dosage: CYCLE 3, 125 MG
     Route: 058
     Dates: start: 20211226, end: 20211230
  11. AZACITIDINE [Suspect]
     Active Substance: AZACITIDINE
     Indication: Acute myelomonocytic leukaemia
     Dosage: CYCLE 6, 125 MG
     Route: 058
     Dates: start: 20230312, end: 20230316
  12. AZACITIDINE [Suspect]
     Active Substance: AZACITIDINE
     Indication: Acute myelomonocytic leukaemia
     Dosage: CYCLE 2, 125 MG
     Route: 058
     Dates: start: 20211121, end: 20211125
  13. AZACITIDINE [Suspect]
     Active Substance: AZACITIDINE
     Indication: Acute myelomonocytic leukaemia
     Dosage: CYCLE 5, 125 MG
     Route: 058
     Dates: start: 20221225, end: 20221226
  14. AZACITIDINE [Suspect]
     Active Substance: AZACITIDINE
     Indication: Acute myelomonocytic leukaemia
     Dosage: CYCLE 6, 125 MG
     Route: 058
     Dates: start: 20230319, end: 20230319
  15. AZACITIDINE [Suspect]
     Active Substance: AZACITIDINE
     Indication: Acute myelomonocytic leukaemia
     Dosage: CYCLE 6, 125 MG
     Route: 058
     Dates: start: 20230312, end: 20230316
  16. AZACITIDINE [Suspect]
     Active Substance: AZACITIDINE
     Indication: Acute myelomonocytic leukaemia
     Dosage: CYCLE 4, 125 MG
     Route: 058
     Dates: start: 20220904, end: 20220908
  17. AZACITIDINE [Suspect]
     Active Substance: AZACITIDINE
     Indication: Acute myelomonocytic leukaemia
     Dosage: CYCLE 3, 125 MG
     Route: 058
     Dates: start: 20220102, end: 20220103
  18. AZACITIDINE [Suspect]
     Active Substance: AZACITIDINE
     Indication: Acute myelomonocytic leukaemia
     Dosage: CYCLE 6, 125 MG
     Route: 058
     Dates: start: 20230321, end: 20230321
  19. AZACITIDINE [Suspect]
     Active Substance: AZACITIDINE
     Indication: Acute myelomonocytic leukaemia
     Dosage: CYCLE 5, 125 MG
     Route: 058
     Dates: start: 20221219, end: 20221222
  20. AZACITIDINE [Suspect]
     Active Substance: AZACITIDINE
     Indication: Acute myelomonocytic leukaemia
     Dosage: CYCLE 1, 125 MG
     Route: 058
     Dates: start: 20211022, end: 20211028
  21. ALLOPURINOL [Concomitant]
     Active Substance: ALLOPURINOL
     Indication: Prophylaxis
     Dates: start: 20211014, end: 20211029
  22. PFIZER-BIONTECH COVID-19 VACCINE [Concomitant]
     Active Substance: TOZINAMERAN
     Indication: COVID-19 immunisation
     Route: 030
     Dates: start: 20201231, end: 20201231
  23. PFIZER-BIONTECH COVID-19 VACCINE [Concomitant]
     Active Substance: TOZINAMERAN
     Indication: COVID-19 immunisation
     Route: 030
     Dates: start: 20210121, end: 20210121
  24. PFIZER-BIONTECH COVID-19 VACCINE [Concomitant]
     Active Substance: TOZINAMERAN
     Indication: COVID-19 immunisation
     Route: 030
     Dates: start: 20220109, end: 20220109
  25. PFIZER-BIONTECH COVID-19 VACCINE [Concomitant]
     Active Substance: TOZINAMERAN
     Indication: COVID-19 immunisation
     Route: 030
     Dates: start: 20210803, end: 20210803
  26. LEVOTHYROXINE [Concomitant]
     Active Substance: LEVOTHYROXINE
     Indication: Hypothyroidism
     Dates: start: 20180912

REACTIONS (4)
  - Disease progression [Unknown]
  - Febrile neutropenia [Recovered/Resolved]
  - Otitis media [Recovered/Resolved]
  - Pneumonia [Recovered/Resolved]

NARRATIVE: CASE EVENT DATE: 20230611
